FAERS Safety Report 11905717 (Version 1)
Quarter: 2016Q1

REPORT INFORMATION
  Report Type: Spontaneous
  Country: US (occurrence: US)
  Receive Date: 20160111
  Receipt Date: 20160111
  Transmission Date: 20160526
  Serious: No
  Sender: FDA-Public Use
  Company Number: US-TEVA-600195USA

PATIENT
  Age: 74 Year
  Sex: Female

DRUGS (1)
  1. LEVALBUTEROL. [Suspect]
     Active Substance: LEVALBUTEROL
     Indication: CHRONIC OBSTRUCTIVE PULMONARY DISEASE
     Dates: start: 20150918

REACTIONS (6)
  - Chronic obstructive pulmonary disease [Unknown]
  - Gait disturbance [Unknown]
  - Nervousness [Unknown]
  - Drug ineffective [Unknown]
  - Dysphonia [Unknown]
  - Product substitution issue [Unknown]

NARRATIVE: CASE EVENT DATE: 201509
